FAERS Safety Report 9658992 (Version 2)
Quarter: 2013Q4

REPORT INFORMATION
  Report Type: Spontaneous
  Country: FR (occurrence: FR)
  Receive Date: 20131031
  Receipt Date: 20131031
  Transmission Date: 20140711
  Serious: Yes (Other)
  Sender: FDA-Public Use
  Company Number: FR-BAXTER-2013BAX020015

PATIENT
  Age: 77 Year
  Sex: Male

DRUGS (3)
  1. EXTRANEAL, SOLUTION POUR DIALYSE P?RITON?ALE [Suspect]
     Indication: PERITONEAL DIALYSIS
     Route: 033
     Dates: start: 2011
  2. PHYSIONEAL 35 GLUCOSE 2,27%, SOLUTION POUR DIALYSE P?RITONEAL [Suspect]
     Indication: PERITONEAL DIALYSIS
     Route: 033
  3. PHYSIONEAL 35 GLUCOSE 1,36%, SOLUTION POUR DIALYSE P?RITON?ALE [Suspect]
     Indication: PERITONEAL DIALYSIS
     Route: 033

REACTIONS (3)
  - Pancreatic neuroendocrine tumour [Not Recovered/Not Resolved]
  - Pruritus [Recovered/Resolved]
  - Insomnia [Recovered/Resolved]
